FAERS Safety Report 8972585 (Version 2)
Quarter: 2012Q4

REPORT INFORMATION
  Report Type: Report from Study
  Country: DK (occurrence: DK)
  Receive Date: 20121218
  Receipt Date: 20121228
  Transmission Date: 20130627
  Serious: Yes (Death)
  Sender: FDA-Public Use
  Company Number: DK-ABBOTT-12P-044-1022760-00

PATIENT
  Age: 52 Year
  Sex: Male
  Weight: 122 kg

DRUGS (5)
  1. HUMIRA [Suspect]
     Indication: PSORIASIS
     Route: 058
     Dates: start: 200611
  2. HUMIRA [Suspect]
     Route: 058
     Dates: start: 20091207, end: 20111226
  3. FUROSEMID [Concomitant]
     Indication: OEDEMA
     Dates: start: 2007
  4. KALIUMCHLORID [Concomitant]
     Indication: OEDEMA
     Dates: start: 2007
  5. MAREVAN [Concomitant]
     Indication: THROMBOSIS PROPHYLAXIS
     Dosage: Once daily as needed
     Dates: start: 200606

REACTIONS (1)
  - Death [Fatal]
